FAERS Safety Report 18985500 (Version 1)
Quarter: 2021Q1

REPORT INFORMATION
  Report Type: Spontaneous
  Country: US (occurrence: US)
  Receive Date: 20210309
  Receipt Date: 20210309
  Transmission Date: 20210420
  Serious: Yes (Other)
  Sender: FDA-Public Use
  Company Number: US-LUPIN PHARMACEUTICALS INC.-2021-03067

PATIENT
  Age: 6 Year
  Sex: Female

DRUGS (5)
  1. MEMANTINE. [Suspect]
     Active Substance: MEMANTINE
     Dosage: 40 MILLIGRAM, QD
     Route: 065
  2. KETAMINE [Concomitant]
     Active Substance: KETAMINE
     Indication: EPILEPTIC ENCEPHALOPATHY
     Dosage: 0.5 MG/KG OVER A 40?MIN PERIOD ONCE PER WEEK FOR THE FIRST MONTH (INFUSION)
     Route: 042
  3. MEMANTINE. [Suspect]
     Active Substance: MEMANTINE
     Indication: EPILEPTIC ENCEPHALOPATHY
     Dosage: UNK
     Route: 065
  4. KETAMINE [Concomitant]
     Active Substance: KETAMINE
     Dosage: 0.5 MG/KG OVER A 40?MIN PERIOD ONCE PER WEEK FOR THE FIRST MONTH (INJECTION)
     Route: 030
  5. KETAMINE [Concomitant]
     Active Substance: KETAMINE
     Dosage: 0.5 MG/KG ONCE PER MONTH (INFUSION)
     Route: 042

REACTIONS (1)
  - Off label use [Unknown]
